FAERS Safety Report 7412081-1 (Version None)
Quarter: 2011Q2

REPORT INFORMATION
  Report Type: 
  Country: None (occurrence: None)
  Receive Date: 20110413
  Receipt Date: 20110329
  Transmission Date: 20111010
  Serious: Yes (Other)
  Sender: FDA-Public Use
  Company Number: US-CELGENEUS-163-50794-11033647

PATIENT
  Sex: Male
  Weight: 77.18 kg

DRUGS (6)
  1. AMLODIPINE [Concomitant]
     Indication: BLOOD PRESSURE
     Route: 065
  2. TAGAMET [Concomitant]
     Route: 065
  3. VIDAZA [Suspect]
     Route: 051
     Dates: start: 20110314
  4. LISINOPRIL [Concomitant]
     Indication: BLOOD PRESSURE
     Route: 065
  5. METOPROLOL TARTRATE [Concomitant]
     Indication: BLOOD PRESSURE
     Route: 065
  6. VFEND [Concomitant]
     Indication: FUNGAL INFECTION
     Route: 065

REACTIONS (2)
  - THROMBOCYTOPENIA [None]
  - LEUKOCYTOSIS [None]
